FAERS Safety Report 11533917 (Version 1)
Quarter: 2015Q3

REPORT INFORMATION
  Report Type: Spontaneous
  Country: US (occurrence: US)
  Receive Date: 20150922
  Receipt Date: 20150922
  Transmission Date: 20151125
  Serious: No
  Sender: FDA-Public Use
  Company Number: US-TEVA-532630USA

PATIENT
  Sex: Female

DRUGS (1)
  1. CARVEDILOL. [Suspect]
     Active Substance: CARVEDILOL
     Indication: PRODUCT USED FOR UNKNOWN INDICATION
     Dosage: 12.5 MILLIGRAM DAILY;
     Route: 048
     Dates: start: 20150103

REACTIONS (12)
  - Insomnia [Unknown]
  - Pollakiuria [Unknown]
  - Abdominal pain [Unknown]
  - Constipation [Unknown]
  - Decreased appetite [Unknown]
  - Dry eye [Unknown]
  - Urine output increased [Unknown]
  - Dry mouth [Unknown]
  - Pain in extremity [Unknown]
  - Headache [Unknown]
  - Balance disorder [Unknown]
  - Heart rate increased [Unknown]
